FAERS Safety Report 20663823 (Version 1)
Quarter: 2022Q2

REPORT INFORMATION
  Report Type: Spontaneous
  Country: US (occurrence: None)
  Receive Date: 20220401
  Receipt Date: 20220401
  Transmission Date: 20220721
  Serious: Yes (Death)
  Sender: FDA-Public Use
  Company Number: None

PATIENT
  Age: 61 Year
  Sex: Female
  Weight: 66.1 kg

DRUGS (1)
  1. REMDESIVIR [Suspect]
     Active Substance: REMDESIVIR
     Indication: COVID-19
     Dosage: FREQUENCY : DAILY;?
     Route: 042
     Dates: start: 20220302, end: 20220306

REACTIONS (10)
  - Malaise [None]
  - Abdominal pain [None]
  - Vasculitis [None]
  - Haematochezia [None]
  - Hypotension [None]
  - Hypoxia [None]
  - Tachypnoea [None]
  - Cardiac arrest [None]
  - Intestinal ischaemia [None]
  - Septic shock [None]

NARRATIVE: CASE EVENT DATE: 20220308
